FAERS Safety Report 6222326-1 (Version None)
Quarter: 2009Q2

REPORT INFORMATION
  Report Type: 
  Country: None (occurrence: None)
  Receive Date: 20090611
  Receipt Date: 20090603
  Transmission Date: 20091009
  Serious: Yes (Other)
  Sender: FDA-Public Use
  Company Number: CH-BAYER-200922524GPV

PATIENT
  Sex: Female

DRUGS (2)
  1. YASMIN [Suspect]
     Indication: OSTEOPOROSIS
     Route: 048
  2. CALCIUM/VITAMIN D3 [Concomitant]
     Indication: OSTEOPOROSIS

REACTIONS (5)
  - MIGRAINE [None]
  - MUSCLE SPASMS [None]
  - PANIC REACTION [None]
  - VARICOSE VEIN [None]
  - WEIGHT INCREASED [None]
